FAERS Safety Report 23608203 (Version 9)
Quarter: 2025Q4

REPORT INFORMATION
  Report Type: Spontaneous
  Country: EU (occurrence: EU)
  Receive Date: 20240307
  Receipt Date: 20251128
  Transmission Date: 20260118
  Serious: Yes (Death, Hospitalization, Other)
  Sender: SANDOZ
  Company Number: EU-002147023-NVSC2020DE043427

PATIENT
  Age: 68 Year
  Sex: Male

DRUGS (61)
  1. ANAKINRA [Suspect]
     Active Substance: ANAKINRA
     Indication: Dermatitis
     Dosage: 100 MILLIGRAM DAILY;
     Route: 058
  2. ANAKINRA [Suspect]
     Active Substance: ANAKINRA
     Indication: Stomatitis
     Dosage: 100 MG, ONCE DAILY (D203)
     Route: 058
  3. ANAKINRA [Suspect]
     Active Substance: ANAKINRA
     Indication: Dry eye
     Dosage: UNK
     Route: 065
  4. ANAKINRA [Suspect]
     Active Substance: ANAKINRA
     Indication: Immunosuppressant drug therapy
  5. ATEZOLIZUMAB [Suspect]
     Active Substance: ATEZOLIZUMAB
     Indication: Follicular lymphoma stage IV
     Dosage: 1200 MG CYCLIC (D1 OF C2-6)
     Route: 065
     Dates: start: 2017
  6. ATEZOLIZUMAB [Suspect]
     Active Substance: ATEZOLIZUMAB
     Indication: Lymphoma
  7. BENDAMUSTINE HYDROCHLORIDE [Suspect]
     Active Substance: BENDAMUSTINE HYDROCHLORIDE
     Indication: Follicular lymphoma stage IV
     Dosage: UNK UNK, CYCLIC
     Route: 042
     Dates: start: 2013, end: 2015
  8. BENDAMUSTINE HYDROCHLORIDE [Suspect]
     Active Substance: BENDAMUSTINE HYDROCHLORIDE
     Indication: Lymphoma
     Dosage: UNK UNK, CYCLIC
     Route: 042
     Dates: start: 2016
  9. CYCLOSPORINE [Suspect]
     Active Substance: CYCLOSPORINE
     Indication: Stomatitis
     Dosage: UNK
     Route: 065
  10. CYCLOSPORINE [Suspect]
     Active Substance: CYCLOSPORINE
     Indication: Dry eye
     Dosage: UNK, UNKNOWN FREQ.
     Route: 065
  11. CYCLOSPORINE [Suspect]
     Active Substance: CYCLOSPORINE
     Indication: Dermatitis
  12. CYCLOSPORINE [Suspect]
     Active Substance: CYCLOSPORINE
     Indication: Immunosuppressant drug therapy
  13. INFLIXIMAB [Suspect]
     Active Substance: INFLIXIMAB
     Indication: Dry eye
     Dosage: 425 MG, Q2W
     Route: 042
  14. INFLIXIMAB [Suspect]
     Active Substance: INFLIXIMAB
     Indication: Stomatitis
     Dosage: 425 MG, TWICE WEEKLY
     Route: 042
  15. INFLIXIMAB [Suspect]
     Active Substance: INFLIXIMAB
     Indication: Dermatitis
     Dosage: 850 MILLIGRAM, QW
     Route: 042
  16. INFLIXIMAB [Suspect]
     Active Substance: INFLIXIMAB
     Indication: Immunosuppressant drug therapy
  17. OBINUTUZUMAB [Suspect]
     Active Substance: OBINUTUZUMAB
     Indication: Follicular lymphoma stage IV
     Dosage: 1000 MG, CYCLIC (D1, D8, D15 OF C1; D1 OF C2-6)
     Route: 065
     Dates: start: 2017
  18. OBINUTUZUMAB [Suspect]
     Active Substance: OBINUTUZUMAB
     Indication: Lymphoma
  19. PREDNISOLONE [Suspect]
     Active Substance: PREDNISOLONE
     Dosage: 10 MG, ONCE DAILY (D77)
     Route: 042
  20. PREDNISOLONE [Suspect]
     Active Substance: PREDNISOLONE
     Dosage: 100 MG, ONCE DAILY  (D84) (D164)(78) (D106) (D107)
     Route: 042
  21. PREDNISOLONE [Suspect]
     Active Substance: PREDNISOLONE
     Dosage: 100 MILLIGRAM, QD
     Route: 048
  22. PREDNISOLONE [Suspect]
     Active Substance: PREDNISOLONE
     Dosage: 100 MILLIGRAM, QD
     Route: 065
  23. PREDNISOLONE [Suspect]
     Active Substance: PREDNISOLONE
     Dosage: 180 MG, TOTAL DOSE (D106)
     Route: 042
  24. PREDNISOLONE [Suspect]
     Active Substance: PREDNISOLONE
     Dosage: 20 MG, ONCE DAILY (D86-100)
     Route: 048
  25. PREDNISOLONE [Suspect]
     Active Substance: PREDNISOLONE
     Dosage: 30 MG, ONCE DAILY (D159)
     Route: 065
  26. PREDNISOLONE [Suspect]
     Active Substance: PREDNISOLONE
     Indication: Immunosuppressant drug therapy
     Dosage: 40 MG, ONCE DAILY (D118-152)
     Route: 065
  27. PREDNISOLONE [Suspect]
     Active Substance: PREDNISOLONE
     Dosage: 5 MG, ONCE DAILY (D186-239)
     Route: 065
  28. PREDNISOLONE [Suspect]
     Active Substance: PREDNISOLONE
     Indication: Dry eye
     Dosage: 50 MG, ONCE DAILY (D161)
     Route: 065
  29. PREDNISOLONE [Suspect]
     Active Substance: PREDNISOLONE
     Indication: Dermatitis
     Dosage: 60 MG, QD
     Route: 065
  30. PREDNISOLONE [Suspect]
     Active Substance: PREDNISOLONE
     Dosage: 70 MG, ONCE DAILY (D173-179)
     Route: 065
  31. PREDNISOLONE [Suspect]
     Active Substance: PREDNISOLONE
     Dosage: 80 MG, QD
     Route: 065
  32. PREDNISOLONE [Suspect]
     Active Substance: PREDNISOLONE
     Indication: Stomatitis
     Dosage: 90 MG, QD
     Route: 065
  33. POLATUZUMAB VEDOTIN [Suspect]
     Active Substance: POLATUZUMAB VEDOTIN
     Indication: Follicular lymphoma stage IV
     Dosage: 1.8 MG/KG, CYCLIC (D1 OF C1-6)
     Route: 065
     Dates: start: 2017
  34. POLATUZUMAB VEDOTIN [Suspect]
     Active Substance: POLATUZUMAB VEDOTIN
     Indication: Lymphoma
  35. RITUXIMAB [Suspect]
     Active Substance: RITUXIMAB
     Indication: Lymphoma
     Dosage: UNK
     Route: 065
     Dates: start: 2013, end: 2015
  36. RITUXIMAB [Suspect]
     Active Substance: RITUXIMAB
     Indication: Product used for unknown indication
     Dosage: UNK
     Route: 065
     Dates: start: 2016
  37. TACROLIMUS [Suspect]
     Active Substance: TACROLIMUS
     Indication: Dry eye
     Dosage: 1 MG, ONCE DAILY (D164)
     Route: 048
  38. TACROLIMUS [Suspect]
     Active Substance: TACROLIMUS
     Indication: Dry eye
     Dosage: 100 MG, ONCE DAILY (D84) (D164)(78) (D106) (D107)
     Route: 042
  39. TACROLIMUS [Suspect]
     Active Substance: TACROLIMUS
     Indication: Dermatitis
  40. TACROLIMUS [Suspect]
     Active Substance: TACROLIMUS
     Indication: Dermatitis
  41. TACROLIMUS [Suspect]
     Active Substance: TACROLIMUS
     Indication: Follicular lymphoma stage IV
  42. TACROLIMUS [Suspect]
     Active Substance: TACROLIMUS
     Indication: Immunosuppressant drug therapy
  43. TACROLIMUS [Suspect]
     Active Substance: TACROLIMUS
     Indication: Off label use
  44. TACROLIMUS [Suspect]
     Active Substance: TACROLIMUS
     Indication: Stomatitis
  45. TACROLIMUS [Suspect]
     Active Substance: TACROLIMUS
     Indication: Stomatitis
  46. ATEZOLIZUMAB [Concomitant]
     Active Substance: ATEZOLIZUMAB
     Indication: Follicular lymphoma stage IV
     Dosage: 1200 MG, CYCLIC  (D1 OF C2-6)
     Route: 065
     Dates: start: 2017
  47. ATEZOLIZUMAB [Concomitant]
     Active Substance: ATEZOLIZUMAB
     Dosage: 1200 MG, CYCLIC  (D1 OF C2-6)
     Route: 065
     Dates: start: 2017
  48. ATEZOLIZUMAB [Concomitant]
     Active Substance: ATEZOLIZUMAB
     Dosage: 1200 MG, CYCLIC  (D1 OF C2-6)
     Route: 065
     Dates: start: 2017
  49. ATEZOLIZUMAB [Concomitant]
     Active Substance: ATEZOLIZUMAB
     Dosage: 1200 MG, CYCLIC  (D1 OF C2-6)
     Route: 065
     Dates: start: 2017
  50. RITUXIMAB [Concomitant]
     Active Substance: RITUXIMAB
     Indication: Follicular lymphoma stage IV
     Dosage: UNK UNK, UNKNOWN FREQ.
     Route: 065
     Dates: start: 2013, end: 2015
  51. RITUXIMAB [Concomitant]
     Active Substance: RITUXIMAB
     Dosage: UNK UNK, UNKNOWN FREQ.
     Route: 065
     Dates: start: 2013, end: 2015
  52. RITUXIMAB [Concomitant]
     Active Substance: RITUXIMAB
     Dosage: UNK UNK, UNKNOWN FREQ.
     Route: 065
     Dates: start: 2013, end: 2015
  53. RITUXIMAB [Concomitant]
     Active Substance: RITUXIMAB
     Dosage: UNK UNK, UNKNOWN FREQ.
     Route: 065
     Dates: start: 2013, end: 2015
  54. RITUXIMAB [Concomitant]
     Active Substance: RITUXIMAB
     Dosage: UNK UNK, UNKNOWN FREQ.
     Route: 065
     Dates: start: 2016
  55. RITUXIMAB [Concomitant]
     Active Substance: RITUXIMAB
     Dosage: UNK UNK, UNKNOWN FREQ.
     Route: 065
     Dates: start: 2016
  56. RITUXIMAB [Concomitant]
     Active Substance: RITUXIMAB
     Dosage: UNK UNK, UNKNOWN FREQ.
     Route: 065
     Dates: start: 2016
  57. RITUXIMAB [Concomitant]
     Active Substance: RITUXIMAB
     Dosage: UNK UNK, UNKNOWN FREQ.
     Route: 065
     Dates: start: 2016
  58. VENETOCLAX [Concomitant]
     Active Substance: VENETOCLAX
     Indication: Follicular lymphoma stage IV
     Dosage: UNK UNK, UNKNOWN FREQ.
     Route: 065
     Dates: start: 2016
  59. VENETOCLAX [Concomitant]
     Active Substance: VENETOCLAX
     Indication: Lymphoma
     Dosage: UNK UNK, UNKNOWN FREQ.
     Route: 065
     Dates: start: 2016
  60. VENETOCLAX [Concomitant]
     Active Substance: VENETOCLAX
     Dosage: UNK UNK, UNKNOWN FREQ.
     Route: 065
     Dates: start: 2016
  61. VENETOCLAX [Concomitant]
     Active Substance: VENETOCLAX
     Dosage: UNK UNK, UNKNOWN FREQ.
     Route: 065
     Dates: start: 2016

REACTIONS (17)
  - Death [Fatal]
  - Bronchopulmonary aspergillosis [Recovered/Resolved]
  - Erysipelas [Recovered/Resolved]
  - Bacteraemia [Recovered/Resolved]
  - Viral infection [Recovered/Resolved]
  - Oral fungal infection [Recovered/Resolved]
  - Rebound effect [Unknown]
  - Dry eye [Unknown]
  - Stomatitis [Unknown]
  - Dermatitis [Unknown]
  - Immune system disorder [Unknown]
  - Opportunistic infection [Unknown]
  - Oral fungal infection [Unknown]
  - Therapy partial responder [Unknown]
  - Product use in unapproved indication [Unknown]
  - Product use in unapproved indication [Unknown]
  - Off label use [Recovered/Resolved]
